FAERS Safety Report 8324126 (Version 7)
Quarter: 2012Q4

REPORT INFORMATION
  Report Type: 
  Country: US (occurrence: US)
  Receive Date: 20120105
  Receipt Date: 20120911
  Transmission Date: 20130627
  Serious: Yes (Hospitalization, Disabling, Other)
  Sender: FDA-Public Use
  Company Number: US-MERCK SHARP  DOHME-1201USA00333

PATIENT

DRUGS (7)
  1. FOSAMAX [Suspect]
     Indication: BONE LOSS
     Dosage: 70 mg, qw
     Route: 048
     Dates: start: 20010122, end: 20090511
  2. FOSAMAX [Suspect]
     Indication: OSTEOPOROSIS
  3. FOSAMAX PLUS D [Suspect]
     Indication: OSTEOPOROSIS
     Dosage: 70-2800
     Route: 048
     Dates: start: 20060430, end: 20110805
  4. FOSAMAX [Suspect]
     Indication: BONE LOSS
     Dosage: 70 mg, qw
     Route: 048
     Dates: start: 20091109, end: 20110215
  5. VITAMIN D (UNSPECIFIED) [Concomitant]
     Indication: PRODUCT USED FOR UNKNOWN INDICATION
     Dosage: 1000 IU, qd
  6. CENTRUM SILVER [Concomitant]
     Indication: PRODUCT USED FOR UNKNOWN INDICATION
     Dosage: UNK UNK, qd
  7. CALCIUM (UNSPECIFIED) [Concomitant]
     Indication: PRODUCT USED FOR UNKNOWN INDICATION
     Dosage: 600 IU, qd

REACTIONS (42)
  - Femur fracture [Not Recovered/Not Resolved]
  - Femur fracture [Recovered/Resolved]
  - Tonsillar disorder [Unknown]
  - Appendix disorder [Unknown]
  - Chest pain [Unknown]
  - Tibia fracture [Unknown]
  - Meniscus injury [Unknown]
  - Intervertebral disc disorder [Unknown]
  - Lung disorder [Unknown]
  - Ventricular extrasystoles [Unknown]
  - Bladder disorder [Unknown]
  - Osteoarthritis [Unknown]
  - Osteoarthritis [Unknown]
  - Nodal osteoarthritis [Unknown]
  - Exostosis [Unknown]
  - Osteosclerosis [Unknown]
  - Vitamin D deficiency [Recovered/Resolved]
  - Osteoarthritis [Unknown]
  - Spinal osteoarthritis [Unknown]
  - Intervertebral disc degeneration [Unknown]
  - Hypoaesthesia [Unknown]
  - Thyroid neoplasm [Unknown]
  - Paraesthesia [Unknown]
  - Ligament sprain [Unknown]
  - Cataract [Unknown]
  - Muscle strain [Unknown]
  - Breast pain [Unknown]
  - Joint effusion [Unknown]
  - Goitre [Unknown]
  - Neuralgia [Unknown]
  - Cough [Unknown]
  - Fall [Unknown]
  - Spinal fracture [Unknown]
  - Arthralgia [Unknown]
  - Drug ineffective [Unknown]
  - Anxiety [None]
  - Fractured sacrum [None]
  - Fracture displacement [None]
  - Fractured coccyx [None]
  - Blood calcium decreased [None]
  - Pathological fracture [None]
  - Stress fracture [None]
